FAERS Safety Report 8331946-X (Version None)
Quarter: 2012Q2

REPORT INFORMATION
  Report Type: 
  Country: None (occurrence: None)
  Receive Date: 20120502
  Receipt Date: 20120420
  Transmission Date: 20120825
  Serious: Yes (Hospitalization, Other)
  Sender: FDA-Public Use
  Company Number: US-ELI_LILLY_AND_COMPANY-US201204008142

PATIENT
  Sex: Female

DRUGS (13)
  1. VITAMIN D [Concomitant]
  2. LASIX [Concomitant]
  3. HYDROCODONE [Concomitant]
  4. FORTEO [Suspect]
     Indication: OSTEOPOROSIS
     Dosage: 20 UG, QD
     Dates: start: 20111201
  5. GLUCOPHAGE [Concomitant]
  6. METHOTREXATE [Concomitant]
  7. HUMIRA [Concomitant]
  8. THIAMINE [Concomitant]
  9. OXYCONTIN [Concomitant]
  10. FOLIC ACID [Concomitant]
  11. WARFARIN SODIUM [Concomitant]
  12. FORTEO [Suspect]
     Dosage: 20 UG, 2/W
  13. CORTISONE ACETATE [Concomitant]

REACTIONS (8)
  - SPINAL FRACTURE [None]
  - STRESS [None]
  - ARTHRITIS [None]
  - HEART RATE INCREASED [None]
  - LOSS OF CONSCIOUSNESS [None]
  - HYPOTENSION [None]
  - THROMBOSIS [None]
  - INAPPROPRIATE SCHEDULE OF DRUG ADMINISTRATION [None]
